FAERS Safety Report 11629031 (Version 3)
Quarter: 2015Q4

REPORT INFORMATION
  Report Type: Spontaneous
  Country: JP (occurrence: JP)
  Receive Date: 20151014
  Receipt Date: 20151209
  Transmission Date: 20160304
  Serious: Yes (Hospitalization)
  Sender: FDA-Public Use
  Company Number: JP-SA-2015SA158983

PATIENT
  Age: 62 Year
  Sex: Male

DRUGS (3)
  1. PLAVIX [Suspect]
     Active Substance: CLOPIDOGREL BISULFATE
     Indication: LACUNAR INFARCTION
     Route: 065
  2. OZAGREL SODIUM [Suspect]
     Active Substance: OZAGREL
     Indication: LACUNAR INFARCTION
     Route: 065
  3. EDARAVONE [Concomitant]
     Active Substance: EDARAVONE

REACTIONS (5)
  - Hemiplegia [Recovering/Resolving]
  - Condition aggravated [Recovering/Resolving]
  - Depressed level of consciousness [Recovered/Resolved]
  - Haematoma [Recovered/Resolved]
  - Putamen haemorrhage [Unknown]
